FAERS Safety Report 7375474-7 (Version None)
Quarter: 2011Q1

REPORT INFORMATION
  Report Type: 
  Country: None (occurrence: None)
  Receive Date: 20110325
  Receipt Date: 20100405
  Transmission Date: 20110831
  Serious: No
  Sender: FDA-Public Use
  Company Number: US-MYLANLABS-2010S1005614

PATIENT
  Age: 45 Year
  Sex: Male
  Weight: 79.38 kg

DRUGS (2)
  1. PROPRANOLOL HYDROCHLORIDE [Suspect]
     Indication: MIGRAINE
     Route: 048
     Dates: start: 20090501, end: 20100401
  2. XALATAN [Concomitant]
     Indication: GLAUCOMA
     Dosage: OU
     Route: 047

REACTIONS (3)
  - WITHDRAWAL ARRHYTHMIA [None]
  - PALPITATIONS [None]
  - TREMOR [None]
